FAERS Safety Report 6687699-4 (Version None)
Quarter: 2010Q2

REPORT INFORMATION
  Report Type: 
  Country: None (occurrence: None)
  Receive Date: 20100409
  Receipt Date: 20091228
  Transmission Date: 20101027
  Serious: Yes (Other)
  Sender: FDA-Public Use
  Company Number: AE 2009-130

PATIENT
  Age: 29 Year
  Sex: Female
  Weight: 67.1324 kg

DRUGS (4)
  1. FAZACLO ODT [Suspect]
     Indication: SCHIZOPHRENIA
     Dosage: 125 MG BID PO
     Route: 048
     Dates: start: 20090708, end: 20090921
  2. AMBIEN [Concomitant]
  3. LOVAZA [Concomitant]
  4. ATIVAN [Concomitant]

REACTIONS (1)
  - CONVULSION [None]
